FAERS Safety Report 25563377 (Version 1)
Quarter: 2025Q3

REPORT INFORMATION
  Report Type: Spontaneous
  Country: GB (occurrence: GB)
  Receive Date: 20250716
  Receipt Date: 20250716
  Transmission Date: 20251021
  Serious: Yes (Other)
  Sender: LABORATOIRES SERB
  Company Number: GB-SERB S.A.S.-2180597

PATIENT

DRUGS (1)
  1. VORAXAZE [Suspect]
     Active Substance: GLUCARPIDASE
     Indication: Toxicity to various agents

REACTIONS (1)
  - Drug ineffective [Unknown]
